FAERS Safety Report 6071285-3 (Version None)
Quarter: 2009Q1

REPORT INFORMATION
  Report Type: 
  Country: None (occurrence: None)
  Receive Date: 20090205
  Receipt Date: 20090121
  Transmission Date: 20090719
  Serious: Yes (Hospitalization)
  Sender: FDA-Public Use
  Company Number: 8041573

PATIENT
  Age: 55 Year
  Sex: Female

DRUGS (1)
  1. KEPPRA [Suspect]

REACTIONS (1)
  - ABDOMINAL PAIN [None]
